FAERS Safety Report 25768544 (Version 1)
Quarter: 2025Q3

REPORT INFORMATION
  Report Type: Spontaneous
  Country: US (occurrence: US)
  Receive Date: 20250905
  Receipt Date: 20250905
  Transmission Date: 20251020
  Serious: No
  Sender: BRISTOL-MYERS SQUIBB COMPANY
  Company Number: US-BRISTOL-MYERS SQUIBB COMPANY-2025-120743

PATIENT
  Age: 90 Year
  Sex: Female

DRUGS (6)
  1. TRIAMCINOLONE ACETONIDE [Suspect]
     Active Substance: TRIAMCINOLONE ACETONIDE
     Indication: Facial asymmetry
     Route: 026
  2. TRIAMCINOLONE ACETONIDE [Suspect]
     Active Substance: TRIAMCINOLONE ACETONIDE
     Indication: Deformity
  3. FLUOROURACIL [Suspect]
     Active Substance: FLUOROURACIL
     Indication: Facial asymmetry
     Route: 026
  4. FLUOROURACIL [Suspect]
     Active Substance: FLUOROURACIL
     Indication: Deformity
  5. DEOXYCHOLIC ACID [Suspect]
     Active Substance: DEOXYCHOLIC ACID
     Indication: Facial asymmetry
     Route: 026
  6. DEOXYCHOLIC ACID [Suspect]
     Active Substance: DEOXYCHOLIC ACID
     Indication: Deformity

REACTIONS (1)
  - Injection site swelling [Unknown]
